FAERS Safety Report 14774445 (Version 1)
Quarter: 2018Q2

REPORT INFORMATION
  Report Type: Spontaneous
  Country: JP (occurrence: JP)
  Receive Date: 20180418
  Receipt Date: 20180418
  Transmission Date: 20180711
  Serious: Yes (Other)
  Sender: FDA-Public Use
  Company Number: JP-MYLANLABS-2018M1025324

PATIENT
  Age: 48 Year
  Sex: Female

DRUGS (6)
  1. LEVETIRACETAM. [Suspect]
     Active Substance: LEVETIRACETAM
     Indication: STATUS EPILEPTICUS
     Dosage: 2000 MG PER DAY
     Route: 065
  2. PHENYTOIN. [Suspect]
     Active Substance: PHENYTOIN
     Indication: STATUS EPILEPTICUS
     Dosage: 300 MG PER DAY
     Route: 065
  3. PERAMPANEL [Suspect]
     Active Substance: PERAMPANEL
     Indication: STATUS EPILEPTICUS
     Dosage: 10 MG PER DAY
     Route: 065
  4. VALPROIC ACID. [Suspect]
     Active Substance: VALPROIC ACID
     Indication: STATUS EPILEPTICUS
     Dosage: 400 MG PER DAY
     Route: 065
  5. PHENOBARBITAL. [Suspect]
     Active Substance: PHENOBARBITAL
     Indication: STATUS EPILEPTICUS
     Dosage: 150 MG PER DAY
     Route: 065
  6. TOPIRAMATE. [Suspect]
     Active Substance: TOPIRAMATE
     Indication: STATUS EPILEPTICUS
     Dosage: 200 MG PER DAY
     Route: 065

REACTIONS (4)
  - Therapeutic product cross-reactivity [Recovered/Resolved]
  - Pyrexia [Unknown]
  - Eosinophilia [Unknown]
  - Erythema multiforme [Unknown]
